FAERS Safety Report 18433632 (Version 3)
Quarter: 2021Q2

REPORT INFORMATION
  Report Type: Spontaneous
  Country: US (occurrence: US)
  Receive Date: 20201028
  Receipt Date: 20210407
  Transmission Date: 20210717
  Serious: No
  Sender: FDA-Public Use
  Company Number: US-SA-2020SA301152

PATIENT
  Age: 41 Year
  Sex: Male

DRUGS (4)
  1. CAPRELSA [Suspect]
     Active Substance: VANDETANIB
     Dosage: 300 MG, QD
     Route: 048
     Dates: start: 20200929
  2. CAPRELSA [Suspect]
     Active Substance: VANDETANIB
     Indication: THYROID CANCER
     Dosage: 300 MG, QD
     Route: 048
     Dates: start: 20200925
  3. DOXYCYCLINE. [Concomitant]
     Active Substance: DOXYCYCLINE
     Dosage: 100 MG, BID
     Route: 065
  4. CAPRELSA [Suspect]
     Active Substance: VANDETANIB
     Dosage: 300 MG, QD IN THE AFTERNOON
     Route: 048
     Dates: start: 20200929

REACTIONS (5)
  - Acne [Unknown]
  - Insurance issue [Unknown]
  - Dry skin [Unknown]
  - Product dose omission issue [Unknown]
  - Fatigue [Unknown]
